FAERS Safety Report 12498329 (Version 3)
Quarter: 2016Q3

REPORT INFORMATION
  Report Type: Spontaneous
  Country: CN (occurrence: CN)
  Receive Date: 20160627
  Receipt Date: 20160705
  Transmission Date: 20161109
  Serious: Yes (Death, Life-Threatening)
  Sender: FDA-Public Use
  Company Number: CN-ROCHE-1778199

PATIENT
  Age: 51 Year
  Sex: Female

DRUGS (1)
  1. XELODA [Suspect]
     Active Substance: CAPECITABINE
     Indication: BREAST CANCER METASTATIC
     Route: 048

REACTIONS (11)
  - Bone marrow failure [Unknown]
  - Neutropenia [Unknown]
  - Septic shock [Not Recovered/Not Resolved]
  - Odynophagia [Unknown]
  - Diarrhoea [Unknown]
  - Rash [Unknown]
  - Mucocutaneous haemorrhage [Fatal]
  - Vomiting [Unknown]
  - Gastric infection [Unknown]
  - Mucosal exfoliation [Unknown]
  - Hypersensitivity [Unknown]
